FAERS Safety Report 7058300-5 (Version None)
Quarter: 2010Q4

REPORT INFORMATION
  Report Type: 
  Country: None (occurrence: None)
  Receive Date: 20101022
  Receipt Date: 20101011
  Transmission Date: 20110411
  Serious: Yes (Hospitalization, Other)
  Sender: FDA-Public Use
  Company Number: US-ELI_LILLY_AND_COMPANY-US201002002493

PATIENT
  Sex: Female

DRUGS (6)
  1. CYMBALTA [Suspect]
     Indication: FIBROMYALGIA
     Dosage: 20 MG, DAILY (1/D)
     Route: 065
     Dates: start: 20091101
  2. CYMBALTA [Suspect]
     Dosage: 20 MG, DAILY (1/D)
     Route: 065
     Dates: start: 20100203, end: 20100901
  3. PLAVIX [Concomitant]
     Dosage: 75 MG, UNKNOWN
     Route: 065
  4. POTASSIUM [Concomitant]
  5. CITRACAL [Concomitant]
  6. ANTIHYPERTENSIVES [Concomitant]

REACTIONS (3)
  - ASTHENIA [None]
  - HAEMOGLOBIN ABNORMAL [None]
  - LETHARGY [None]
